FAERS Safety Report 6723173-4 (Version None)
Quarter: 2010Q2

REPORT INFORMATION
  Report Type: 
  Country: None (occurrence: None)
  Receive Date: 20100513
  Receipt Date: 20100505
  Transmission Date: 20101027
  Serious: Yes (Other)
  Sender: FDA-Public Use
  Company Number: US-JNJFOC-20100501977

PATIENT
  Sex: Male
  Weight: 83.92 kg

DRUGS (4)
  1. DURAGESIC-100 [Suspect]
     Indication: NEURALGIA
     Route: 062
  2. DURAGESIC-100 [Suspect]
     Route: 062
  3. METHADONE [Concomitant]
     Indication: PAIN
     Route: 048
  4. VALIUM [Concomitant]
     Indication: ANXIETY
     Route: 048

REACTIONS (8)
  - CHRONIC OBSTRUCTIVE PULMONARY DISEASE [None]
  - CONSTIPATION [None]
  - DYSURIA [None]
  - FALL [None]
  - INSOMNIA [None]
  - LUNG INFECTION [None]
  - LUNG INFECTION PSEUDOMONAL [None]
  - PAIN [None]
